FAERS Safety Report 8591224 (Version 2)
Quarter: 2013Q1

REPORT INFORMATION
  Report Type: Spontaneous
  Country: US (occurrence: US)
  Receive Date: 20120601
  Receipt Date: 20130124
  Transmission Date: 20140127
  Serious: No
  Sender: FDA-Public Use
  Company Number: US-PFIZER INC-2012130027

PATIENT
  Age: 47 Year
  Sex: Female
  Weight: 92.97 kg

DRUGS (24)
  1. CELEBREX [Suspect]
     Indication: ARTHRALGIA
     Dosage: 200 MG, 2X/DAY
     Route: 048
     Dates: end: 201301
  2. CHANTIX [Suspect]
     Dosage: UNK
  3. LYRICA [Suspect]
     Indication: DIABETIC NEUROPATHY
     Dosage: 50 MG, 3X/DAY
     Route: 048
     Dates: start: 2011, end: 201301
  4. LYRICA [Suspect]
     Indication: DIABETIC NEUROPATHY
  5. JANUVIA [Concomitant]
     Dosage: UNK
  6. METFORMIN [Concomitant]
     Dosage: UNK
  7. INVEGA [Concomitant]
     Dosage: UNK
  8. PROZAC [Concomitant]
     Dosage: UNK
  9. LORATADINE [Concomitant]
     Dosage: UNK
  10. AMITRIPTYLINE [Concomitant]
     Dosage: UNK
  11. AMLODIPINE [Concomitant]
     Dosage: UNK
  12. PRAZOSIN [Concomitant]
     Dosage: UNK
  13. SINGULAIR [Concomitant]
     Dosage: UNK
  14. SEROQUEL [Concomitant]
     Dosage: UNK
  15. TRAZODONE [Concomitant]
     Dosage: UNK
  16. OMEPRAZOLE [Concomitant]
     Indication: ULCER
     Dosage: UNK
  17. LOVASTATIN [Concomitant]
     Dosage: UNK
  18. LISINOPRIL [Concomitant]
     Dosage: UNK
  19. PROAIR HFA [Concomitant]
     Dosage: UNK
  20. ASPIRIN [Concomitant]
     Dosage: UNK
  21. FLUTICASONE [Concomitant]
     Dosage: UNK
  22. ADVAIR [Concomitant]
     Dosage: UNK
  23. METHOCARBAMOL [Concomitant]
     Dosage: UNK
  24. HYDROCODONE [Concomitant]
     Dosage: UNK

REACTIONS (4)
  - Nervous system disorder [Unknown]
  - Drug ineffective [Unknown]
  - Arthralgia [Unknown]
  - Neuralgia [Unknown]
